FAERS Safety Report 17373377 (Version 1)
Quarter: 2020Q1

REPORT INFORMATION
  Report Type: Spontaneous
  Country: US (occurrence: US)
  Receive Date: 20200204
  Receipt Date: 20200204
  Transmission Date: 20200409
  Serious: No
  Sender: FDA-Public Use
  Company Number: None

PATIENT
  Age: 70 Year
  Sex: Male
  Weight: 99 kg

DRUGS (1)
  1. MULTIHANCE [Suspect]
     Active Substance: GADOBENATE DIMEGLUMINE
     Dosage: ?          OTHER FREQUENCY:ONE TIME ONLY;?
     Route: 042

REACTIONS (5)
  - Nausea [None]
  - Headache [None]
  - Pulmonary congestion [None]
  - Sneezing [None]
  - Post procedural complication [None]

NARRATIVE: CASE EVENT DATE: 20200131
